FAERS Safety Report 18566281 (Version 1)
Quarter: 2020Q4

REPORT INFORMATION
  Report Type: Spontaneous
  Country: RU (occurrence: RU)
  Receive Date: 20201201
  Receipt Date: 20201201
  Transmission Date: 20210114
  Serious: Yes (Other)
  Sender: FDA-Public Use
  Company Number: RU-BAYER-2020-244865

PATIENT
  Age: 42 Year
  Sex: Female

DRUGS (3)
  1. YAZ PLUS [Suspect]
     Active Substance: DROSPIRENONE\ETHINYL ESTRADIOL
     Dosage: UNK
     Route: 048
     Dates: start: 2018, end: 2018
  2. YAZ PLUS [Suspect]
     Active Substance: DROSPIRENONE\ETHINYL ESTRADIOL
     Dosage: UNK
     Dates: start: 202008, end: 202011
  3. YAZ PLUS [Suspect]
     Active Substance: DROSPIRENONE\ETHINYL ESTRADIOL
     Dosage: UNK
     Route: 048
     Dates: start: 2016, end: 2016

REACTIONS (9)
  - Abnormal faeces [Recovered/Resolved]
  - Abdominal distension [Recovered/Resolved]
  - Gastrointestinal pain [Recovered/Resolved]
  - Gastritis [Recovered/Resolved]
  - Cholecystitis [None]
  - Increased appetite [None]
  - Duodenogastric reflux [None]
  - Gastrooesophageal reflux disease [None]
  - Abdominal pain [Recovered/Resolved]

NARRATIVE: CASE EVENT DATE: 202011
